FAERS Safety Report 23330458 (Version 1)
Quarter: 2023Q4

REPORT INFORMATION
  Report Type: Spontaneous
  Country: US (occurrence: US)
  Receive Date: 20231222
  Receipt Date: 20231222
  Transmission Date: 20240110
  Serious: No
  Sender: FDA-Public Use
  Company Number: US-EDENBRIDGE PHARMACEUTICALS, LLC-US-2023EDE000035

PATIENT
  Age: 76 Year
  Sex: Male

DRUGS (3)
  1. IVERMECTIN [Suspect]
     Active Substance: IVERMECTIN
     Indication: Acarodermatitis
     Dosage: 4 TABLETS, SINGLE DOSE
     Route: 048
     Dates: start: 202301, end: 202301
  2. IVERMECTIN [Suspect]
     Active Substance: IVERMECTIN
     Dosage: 4 TABLETS, SINGLE DOSE
     Route: 048
     Dates: start: 2023, end: 2023
  3. IVERMECTIN [Suspect]
     Active Substance: IVERMECTIN
     Dosage: 4 TABLETS, SINGLE DOSE
     Route: 048
     Dates: start: 20230425, end: 20230425

REACTIONS (1)
  - Product use in unapproved indication [Unknown]

NARRATIVE: CASE EVENT DATE: 20230101
